FAERS Safety Report 6189708-8 (Version None)
Quarter: 2009Q2

REPORT INFORMATION
  Report Type: 
  Country: None (occurrence: None)
  Receive Date: 20090514
  Receipt Date: 20090506
  Transmission Date: 20091009
  Serious: Yes (Other)
  Sender: FDA-Public Use
  Company Number: FR-ROCHE-615951

PATIENT
  Sex: Female
  Weight: 58 kg

DRUGS (1)
  1. BONIVA [Suspect]
     Indication: OSTEOPOROSIS
     Dosage: DOSE: 1 DOSE
     Route: 048
     Dates: start: 20080101, end: 20081208

REACTIONS (4)
  - BLOOD ALKALINE PHOSPHATASE INCREASED [None]
  - C-REACTIVE PROTEIN INCREASED [None]
  - HYPERCOAGULATION [None]
  - VENOUS THROMBOSIS [None]
